FAERS Safety Report 10494497 (Version 3)
Quarter: 2014Q4

REPORT INFORMATION
  Report Type: Report from Study
  Country: US (occurrence: US)
  Receive Date: 20141003
  Receipt Date: 20141106
  Transmission Date: 20150528
  Serious: Yes (Hospitalization, Other)
  Sender: FDA-Public Use
  Company Number: US-AMGEN INC.-USASP2014074259

PATIENT
  Age: 60 Year
  Sex: Female

DRUGS (1)
  1. ENBREL [Suspect]
     Active Substance: ETANERCEPT
     Indication: RHEUMATOID ARTHRITIS
     Dosage: 50 MG, QWK
     Route: 058
     Dates: start: 201408, end: 201409

REACTIONS (10)
  - Oral fungal infection [Recovered/Resolved]
  - Injection site erythema [Not Recovered/Not Resolved]
  - Skin ulcer haemorrhage [Unknown]
  - Injection site swelling [Not Recovered/Not Resolved]
  - Dehydration [Recovered/Resolved]
  - Hypotension [Unknown]
  - Oral candidiasis [Unknown]
  - Peripheral swelling [Unknown]
  - Contusion [Unknown]
  - Injection site rash [Not Recovered/Not Resolved]

NARRATIVE: CASE EVENT DATE: 201408
